FAERS Safety Report 6400983-4 (Version None)
Quarter: 2009Q4

REPORT INFORMATION
  Report Type: 
  Country: None (occurrence: None)
  Receive Date: 20091015
  Receipt Date: 20091006
  Transmission Date: 20100525
  Serious: Yes (Hospitalization)
  Sender: FDA-Public Use
  Company Number: DE-BIOGENIDEC-2009BI027114

PATIENT
  Age: 25 Year
  Sex: Female
  Weight: 44 kg

DRUGS (1)
  1. TYSABRI [Suspect]
     Indication: MULTIPLE SCLEROSIS
     Route: 042
     Dates: start: 20081215

REACTIONS (8)
  - COLITIS [None]
  - DEHYDRATION [None]
  - GASTROENTERITIS [None]
  - GASTROINTESTINAL INFLAMMATION [None]
  - HYPOKALAEMIA [None]
  - HYPOVOLAEMIA [None]
  - PROTHROMBIN TIME PROLONGED [None]
  - TACHYCARDIA [None]
